FAERS Safety Report 10240018 (Version 1)
Quarter: 2014Q2

REPORT INFORMATION
  Report Type: Spontaneous
  Country: US (occurrence: US)
  Receive Date: 20140616
  Receipt Date: 20140616
  Transmission Date: 20141212
  Serious: Yes (Other)
  Sender: FDA-Public Use
  Company Number: US-JNJFOC-20140603409

PATIENT
  Age: 59 Year
  Sex: Female

DRUGS (1)
  1. PHENYLEPHRINE NOS [Suspect]
     Indication: SINUSITIS
     Route: 048

REACTIONS (1)
  - Cerebral haemorrhage [Unknown]
